FAERS Safety Report 8545257-0 (Version None)
Quarter: 2012Q3

REPORT INFORMATION
  Report Type: 
  Country: None (occurrence: None)
  Receive Date: 20120727
  Receipt Date: 20120521
  Transmission Date: 20120928
  Serious: Yes (Death)
  Sender: FDA-Public Use
  Company Number: US-009507513-2012SP024011

PATIENT

DRUGS (6)
  1. ASPIRIN [Concomitant]
     Indication: PRODUCT USED FOR UNKNOWN INDICATION
     Dosage: 81 MG, UNKNOWN
  2. FOLIC ACID [Concomitant]
     Indication: PRODUCT USED FOR UNKNOWN INDICATION
     Dosage: UNK UNK, UNKNOWN
  3. COUMADIN [Concomitant]
     Indication: CARDIAC VALVE PROSTHESIS USER
     Dosage: 10MG OR 7.5 MG
  4. BENADRYL [Concomitant]
     Indication: PRODUCT USED FOR UNKNOWN INDICATION
     Dosage: UNK UNK, UNKNOWN
  5. CLARITIN [Suspect]
     Indication: HYPERSENSITIVITY
     Dosage: 10 MG, ONCE
     Route: 048
     Dates: start: 20120416
  6. DETROL [Concomitant]
     Indication: HYPERSENSITIVITY
     Dosage: UNK UNK, UNKNOWN

REACTIONS (4)
  - FATIGUE [None]
  - HEADACHE [None]
  - DIZZINESS [None]
  - DISCOMFORT [None]
